FAERS Safety Report 8882459 (Version 1)
Quarter: 2012Q4

REPORT INFORMATION
  Report Type: 
  Country: US (occurrence: US)
  Receive Date: 20121102
  Receipt Date: 20121102
  Transmission Date: 20130627
  Serious: No
  Sender: FDA-Public Use
  Company Number: US-009507513-2012SP032305

PATIENT
  Sex: Male

DRUGS (2)
  1. COPPERTONE SPORT CONTINUOUS SPRAY SPF-30 [Suspect]
     Indication: PRODUCT USED FOR UNKNOWN INDICATION
     Dosage: UNK UNK, Unknown
     Route: 061
  2. COPPERTONE SPORT CONTINUOUS SPRAY SPF-30 [Suspect]
     Dosage: UNK UNK, Unknown
     Route: 061

REACTIONS (2)
  - Blister [Unknown]
  - Expired drug administered [Unknown]
